FAERS Safety Report 6931905-5 (Version None)
Quarter: 2010Q3

REPORT INFORMATION
  Report Type: 
  Country: None (occurrence: None)
  Receive Date: 20100819
  Receipt Date: 20100813
  Transmission Date: 20110219
  Serious: Yes (Other)
  Sender: FDA-Public Use
  Company Number: US-BAXTER-2010BH021505

PATIENT
  Age: 25 Year
  Sex: Male

DRUGS (8)
  1. GAMMAGARD LIQUID [Suspect]
     Indication: IMMUNODEFICIENCY COMMON VARIABLE
     Route: 065
  2. GAMMAGARD LIQUID [Suspect]
     Indication: PRIMARY IMMUNODEFICIENCY SYNDROME
     Route: 065
  3. PROBIOTICA [Concomitant]
     Route: 048
  4. ACETAMINOPHEN [Concomitant]
     Route: 048
  5. AMBIEN [Concomitant]
     Route: 048
  6. ARMOR [Concomitant]
     Route: 048
  7. PANCREATIN [Concomitant]
  8. PANTOPRAZOLE [Concomitant]
     Route: 048

REACTIONS (5)
  - CHILLS [None]
  - MUSCLE SPASMS [None]
  - PALLOR [None]
  - SEPSIS [None]
  - SINUSITIS [None]
